FAERS Safety Report 4583862-7 (Version None)
Quarter: 2005Q1

REPORT INFORMATION
  Report Type: 
  Country: None (occurrence: None)
  Receive Date: 20050211
  Receipt Date: 20041228
  Transmission Date: 20050727
  Serious: Yes (Life-Threatening)
  Sender: FDA-Public Use
  Company Number: 2005PK00219

PATIENT
  Age: 21 Year
  Sex: Female

DRUGS (3)
  1. SEROQUEL [Suspect]
  2. CARBAMAZEPIN ^GRY^ [Suspect]
  3. LORAZEPAM ^AYERST^ [Concomitant]

REACTIONS (1)
  - PANCYTOPENIA [None]
